FAERS Safety Report 8305743-5 (Version None)
Quarter: 2012Q1

REPORT INFORMATION
  Report Type: 
  Country: None (occurrence: None)
  Receive Date: 20120326
  Receipt Date: 20110920
  Transmission Date: 20120608
  Serious: Yes (Other)
  Sender: FDA-Public Use
  Company Number: PHEH2011US01139

PATIENT
  Age: 74 Year
  Sex: Female

DRUGS (7)
  1. INFLUENZA VACCINE (INFLUENZA VACCINE) [Concomitant]
  2. GLYBURIDE [Concomitant]
  3. DIOVAN [Concomitant]
  4. TASIGNA [Suspect]
     Indication: CHRONIC MYELOID LEUKAEMIA
     Dosage: 300 MG, BID, ORAL
     Route: 048
     Dates: start: 20110808
  5. METFORMIN HCL [Concomitant]
  6. ATENOLOL [Concomitant]
  7. PRAVASTATIN [Concomitant]

REACTIONS (2)
  - COLITIS [None]
  - BLOOD GLUCOSE INCREASED [None]
